FAERS Safety Report 8842867 (Version 2)
Quarter: 2012Q4

REPORT INFORMATION
  Report Type: 
  Country: US (occurrence: US)
  Receive Date: 20121016
  Receipt Date: 20121205
  Transmission Date: 20130627
  Serious: Yes (Other)
  Sender: FDA-Public Use
  Company Number: US-PFIZER INC-2012257000

PATIENT
  Age: 28 Year
  Sex: Male
  Weight: 107 kg

DRUGS (3)
  1. XANAX [Suspect]
     Indication: TREMOR
     Dosage: 0.5 mg, UNK
     Dates: start: 2012, end: 201210
  2. XANAX [Suspect]
     Dosage: 0.5 mg, 4x/day
     Dates: start: 201210
  3. ZOLOFT [Suspect]
     Indication: PANIC DISORDER
     Dosage: 100 mg, 1x/day
     Route: 048
     Dates: start: 201210

REACTIONS (7)
  - Mania [Recovered/Resolved]
  - Panic disorder [Recovered/Resolved]
  - Insomnia [Recovered/Resolved]
  - Nervousness [Recovered/Resolved]
  - Anxiety [Recovered/Resolved]
  - Drug ineffective for unapproved indication [Recovered/Resolved]
  - Off label use [Unknown]
